FAERS Safety Report 11362347 (Version 2)
Quarter: 2015Q4

REPORT INFORMATION
  Report Type: Spontaneous
  Country: US (occurrence: US)
  Receive Date: 20150810
  Receipt Date: 20151110
  Transmission Date: 20160304
  Serious: Yes (Hospitalization, Other)
  Sender: FDA-Public Use
  Company Number: US-DSJP-DSU-2015-124865

PATIENT

DRUGS (3)
  1. BENICAR [Suspect]
     Active Substance: OLMESARTAN MEDOXOMIL
     Indication: HYPERTENSION
     Dosage: UNK
     Dates: start: 20030101
  2. BENICAR [Suspect]
     Active Substance: OLMESARTAN MEDOXOMIL
     Dosage: 40 MG, UNK
     Dates: start: 20041101, end: 20150402
  3. BENICAR HCT [Suspect]
     Active Substance: HYDROCHLOROTHIAZIDE\OLMESARTAN MEDOXOMIL
     Indication: HYPERTENSION
     Dosage: 40/25 MG, QD
     Dates: start: 20041101, end: 20150402

REACTIONS (11)
  - Renal failure [Unknown]
  - Anxiety [Unknown]
  - Haemorrhoids [Unknown]
  - Malabsorption [Unknown]
  - Gastrointestinal surgery [Unknown]
  - Intestinal obstruction [Unknown]
  - Hypertensive crisis [Unknown]
  - Cholelithiasis [Unknown]
  - Irritable bowel syndrome [Unknown]
  - Chronic gastritis [Unknown]
  - Depression [Unknown]

NARRATIVE: CASE EVENT DATE: 2000
